FAERS Safety Report 25129166 (Version 1)
Quarter: 2025Q1

REPORT INFORMATION
  Report Type: Spontaneous
  Country: BR (occurrence: BR)
  Receive Date: 20250327
  Receipt Date: 20250327
  Transmission Date: 20250408
  Serious: Yes (Other)
  Sender: ROCHE
  Company Number: BR-SANDOZ-SDZ2025BR016806

PATIENT
  Age: 66 Year
  Sex: Male

DRUGS (7)
  1. LUCENTIS [Suspect]
     Active Substance: RANIBIZUMAB
     Indication: Product used for unknown indication
     Route: 065
  2. ROSUVASTATIN [Suspect]
     Active Substance: ROSUVASTATIN
     Indication: Product used for unknown indication
     Route: 065
  3. SIMVASTATIN [Suspect]
     Active Substance: SIMVASTATIN
     Indication: Product used for unknown indication
     Route: 065
  4. EZETIMIBE [Suspect]
     Active Substance: EZETIMIBE
     Indication: Hypercholesterolaemia
     Route: 065
     Dates: start: 202307
  5. VOTRIENT [Suspect]
     Active Substance: PAZOPANIB HYDROCHLORIDE
     Indication: Product used for unknown indication
     Route: 065
  6. INCLISIRAN [Suspect]
     Active Substance: INCLISIRAN
     Indication: Low density lipoprotein
     Route: 058
  7. RINVOQ [Suspect]
     Active Substance: UPADACITINIB
     Indication: Dermatitis atopic
     Dosage: 15 MG, QD
     Route: 065
     Dates: start: 20220809

REACTIONS (1)
  - Blood creatine phosphokinase increased [Unknown]
